FAERS Safety Report 4679743-0 (Version None)
Quarter: 2005Q2

REPORT INFORMATION
  Report Type: 
  Country: None (occurrence: None)
  Receive Date: 20050602
  Receipt Date: 20050523
  Transmission Date: 20051028
  Serious: Yes (Death)
  Sender: FDA-Public Use
  Company Number: US-ROCHE-405538

PATIENT

DRUGS (1)
  1. CEFTRIAXONE SODIUM [Suspect]
     Indication: ACUTE CHEST SYNDROME
     Route: 065

REACTIONS (6)
  - HAEMOLYTIC ANAEMIA [None]
  - HEPATITIS [None]
  - MULTI-ORGAN FAILURE [None]
  - RENAL FAILURE [None]
  - RESPIRATORY FAILURE [None]
  - SHOCK [None]
